FAERS Safety Report 4354728-2 (Version None)
Quarter: 2004Q2

REPORT INFORMATION
  Report Type: 
  Country: None (occurrence: None)
  Receive Date: 20040503
  Receipt Date: 20040419
  Transmission Date: 20050107
  Serious: Yes (Other)
  Sender: FDA-Public Use
  Company Number: 200416722BWH

PATIENT
  Age: 38 Year
  Sex: Female

DRUGS (2)
  1. AVELOX [Suspect]
     Dosage: ORAL
     Route: 048
     Dates: start: 20040116, end: 20040128
  2. PRENATE [Concomitant]

REACTIONS (6)
  - ABORTION MISSED [None]
  - COMPLICATIONS OF MATERNAL EXPOSURE TO THERAPEUTIC DRUGS [None]
  - INTRA-UTERINE DEATH [None]
  - MATERNAL DRUGS AFFECTING FOETUS [None]
  - OVARIAN CYST [None]
  - ULTRASOUND SCAN VAGINA ABNORMAL [None]
